FAERS Safety Report 5519456-6 (Version None)
Quarter: 2007Q4

REPORT INFORMATION
  Report Type: 
  Country: None (occurrence: None)
  Receive Date: 20071114
  Receipt Date: 20071102
  Transmission Date: 20080405
  Serious: Yes (Disabling)
  Sender: FDA-Public Use
  Company Number: 2007AL004733

PATIENT
  Age: 34 Year
  Sex: Female

DRUGS (4)
  1. PROPRANOLOL [Suspect]
     Indication: ANXIETY
     Dosage: 80 MG;QD;PO
     Route: 048
     Dates: start: 20030101
  2. ZOPICLONE [Concomitant]
  3. CARBAMAZEPINE [Concomitant]
  4. OLANZAPINE [Concomitant]

REACTIONS (3)
  - ALOPECIA [None]
  - TINNITUS [None]
  - WEIGHT INCREASED [None]
